FAERS Safety Report 14660296 (Version 6)
Quarter: 2018Q3

REPORT INFORMATION
  Report Type: Spontaneous
  Country: US (occurrence: US)
  Receive Date: 20180320
  Receipt Date: 20180828
  Transmission Date: 20181010
  Serious: Yes (Death, Other)
  Sender: FDA-Public Use
  Company Number: US-PFIZER INC-2018115379

PATIENT
  Age: 83 Year
  Sex: Male
  Weight: 85.7 kg

DRUGS (33)
  1. AMOXICILLIN. [Concomitant]
     Active Substance: AMOXICILLIN
     Dosage: UNK
     Dates: start: 20080407
  2. FLUTICASONE. [Concomitant]
     Active Substance: FLUTICASONE
     Dosage: UNK
  3. PENICILLIN [Concomitant]
     Active Substance: PENICILLIN
     Dosage: UNK
     Dates: start: 20100119, end: 20100218
  4. CARVEDILOL. [Concomitant]
     Active Substance: CARVEDILOL
     Dosage: 1 DF, 2X/DAY
  5. XARELTO [Concomitant]
     Active Substance: RIVAROXABAN
     Dosage: 15 MG, 1X/DAY
     Route: 048
  6. NEXIUM 24HR [Suspect]
     Active Substance: ESOMEPRAZOLE MAGNESIUM
     Dosage: UNK
     Route: 048
  7. SOTALOL. [Concomitant]
     Active Substance: SOTALOL
     Dosage: 80 MG, 1X/DAY
     Route: 065
  8. NEXIUM [Suspect]
     Active Substance: ESOMEPRAZOLE MAGNESIUM
     Indication: GASTROOESOPHAGEAL REFLUX DISEASE
     Dosage: 20 MG, 1X/DAY
     Route: 048
  9. FUROSEMIDE. [Concomitant]
     Active Substance: FUROSEMIDE
     Dosage: UNK
     Dates: start: 20040101
  10. IBUPROFEN. [Concomitant]
     Active Substance: IBUPROFEN
     Indication: PAIN
     Dosage: UNK
     Dates: start: 201501, end: 201510
  11. ROLAIDS [DIHYDROXYALUMINUM SODIUM CARBONATE] [Concomitant]
     Indication: ANTACID THERAPY
     Dosage: UNK, UPTO TO TWICE DAILY
     Dates: start: 1970, end: 20151014
  12. XOPENEX [Concomitant]
     Active Substance: LEVALBUTEROL HYDROCHLORIDE
     Dosage: UNK
  13. LISINOPRIL. [Concomitant]
     Active Substance: LISINOPRIL
     Dosage: 5.0MG UNKNOWN
  14. COREG [Concomitant]
     Active Substance: CARVEDILOL
     Dosage: 125 MG, 2X/DAY
     Route: 048
  15. FINASTERIDE. [Concomitant]
     Active Substance: FINASTERIDE
     Dosage: 5 MG, 1X/DAY
  16. NEXIUM [Suspect]
     Active Substance: ESOMEPRAZOLE MAGNESIUM
     Dosage: 40 MG, DAILY
     Route: 048
     Dates: start: 201104, end: 201305
  17. PROTONIX [Suspect]
     Active Substance: PANTOPRAZOLE SODIUM
     Dosage: 40 MG, 1X/DAY
     Route: 065
     Dates: start: 200807, end: 201104
  18. ATORVASTATIN [Concomitant]
     Active Substance: ATORVASTATIN
     Dosage: 10 MG, UNK
     Dates: start: 20120125, end: 20150501
  19. LASIX [Concomitant]
     Active Substance: FUROSEMIDE
     Dosage: 40 MG, 1X/DAY
     Route: 048
  20. PROTONIX [Suspect]
     Active Substance: PANTOPRAZOLE SODIUM
     Indication: GASTROOESOPHAGEAL REFLUX DISEASE
     Dosage: 40 MG, DAILY
     Route: 048
     Dates: start: 20021115, end: 200712
  21. ALKA SELTZER [ACETYLSALICYLIC ACID;CITRIC ACID;SODIUM BICARBONATE] [Concomitant]
     Dates: start: 1970, end: 20151014
  22. METOPROLOL. [Concomitant]
     Active Substance: METOPROLOL
     Dosage: 0.5 DF, 2X/DAY
  23. SPIRONOLACTONE. [Concomitant]
     Active Substance: SPIRONOLACTONE
     Dosage: UNK
  24. CAPTOPRIL. [Concomitant]
     Active Substance: CAPTOPRIL
     Dosage: 40 MG, 1X/DAY
     Route: 048
  25. PRILOSEC OTC [Suspect]
     Active Substance: OMEPRAZOLE MAGNESIUM
     Indication: GASTROOESOPHAGEAL REFLUX DISEASE
     Dosage: ONCE DAILY
     Route: 048
  26. ATORVASTATIN [Concomitant]
     Active Substance: ATORVASTATIN
     Dosage: UNK
     Dates: start: 20121125, end: 20150501
  27. BUDESONIDE. [Concomitant]
     Active Substance: BUDESONIDE
     Dosage: 32MCG/INH
     Route: 045
  28. SYNTHROID [Concomitant]
     Active Substance: LEVOTHYROXINE SODIUM
     Dosage: UNK
  29. LIPITOR [Concomitant]
     Active Substance: ATORVASTATIN CALCIUM
     Dosage: UNK
     Dates: start: 20101201, end: 20110801
  30. ALKA?SELTZER [Concomitant]
     Active Substance: ANHYDROUS CITRIC ACID\ASPIRIN\SODIUM BICARBONATE
     Indication: ANTACID THERAPY
     Dosage: UNK, UP TO ONCE AND TWICE DAILY
     Dates: start: 1970, end: 20151014
  31. FLOMAX [Concomitant]
     Active Substance: TAMSULOSIN HYDROCHLORIDE
     Dosage: 0.4 MG, 1X/DAY
  32. MONTELUKAST [Concomitant]
     Active Substance: MONTELUKAST SODIUM
     Dosage: UNK
  33. WARFARIN [Concomitant]
     Active Substance: WARFARIN
     Dosage: 1 MG, 1X/DAY
     Route: 065

REACTIONS (2)
  - Death [Fatal]
  - Chronic kidney disease [Unknown]

NARRATIVE: CASE EVENT DATE: 20150412
